FAERS Safety Report 18942576 (Version 1)
Quarter: 2021Q1

REPORT INFORMATION
  Report Type: Spontaneous
  Country: US (occurrence: US)
  Receive Date: 20210225
  Receipt Date: 20210225
  Transmission Date: 20210420
  Serious: No
  Sender: FDA-Public Use
  Company Number: US-PERRIGO-20US010293

PATIENT
  Age: 87 Year
  Sex: Female
  Weight: 54.42 kg

DRUGS (5)
  1. NAPROXEN SODIUM. [Suspect]
     Active Substance: NAPROXEN SODIUM
     Indication: PAIN
     Dosage: 220 MG, QD FOR 2 TO 3 DAYS
     Route: 048
     Dates: start: 202007, end: 202007
  2. ASPIRIN 81 [Concomitant]
     Active Substance: ASPIRIN
     Indication: CHEST PAIN
     Dosage: UNK, UNK
     Route: 048
  3. AMLODIPINE [Concomitant]
     Active Substance: AMLODIPINE BESYLATE
     Indication: HYPERTENSION
     Dosage: UNK, UNK
     Route: 048
     Dates: start: 2017
  4. LEVOTHYROXINE. [Concomitant]
     Active Substance: LEVOTHYROXINE
     Indication: THYROID DISORDER
     Dosage: UNK, UNK
     Route: 048
     Dates: start: 2017
  5. GABAPENTIN. [Concomitant]
     Active Substance: GABAPENTIN
     Indication: BACK DISORDER
     Dosage: UNK, UNK
     Route: 048
     Dates: start: 2015

REACTIONS (2)
  - Faeces soft [Recovered/Resolved]
  - Nausea [Recovered/Resolved]

NARRATIVE: CASE EVENT DATE: 202007
